FAERS Safety Report 4298486-9 (Version None)
Quarter: 2004Q1

REPORT INFORMATION
  Report Type: 
  Country: None (occurrence: None)
  Receive Date: 20040218
  Receipt Date: 20031029
  Transmission Date: 20041129
  Serious: Yes (Other)
  Sender: FDA-Public Use
  Company Number: US-BRISTOL-MYERS SQUIBB COMPANY-12424065

PATIENT
  Sex: Male

DRUGS (14)
  1. STADOL [Suspect]
     Indication: BACK PAIN
     Route: 045
     Dates: start: 19960101
  2. HYDROCODONE + ACETAMINOPHEN [Concomitant]
  3. FIORICET [Concomitant]
  4. ORPHENADRINE HYDROCHLORIDE FILM TAB [Concomitant]
  5. ACETAMINOPHEN + CODEINE NO. 3 [Concomitant]
  6. CYCLOBENZAPRINE [Concomitant]
  7. AMITRIPTYLINE HCL [Concomitant]
  8. NALBUPHINE [Concomitant]
  9. HYDROXYZINE [Concomitant]
  10. PENTAZOCINE [Concomitant]
  11. BUTALBITAL+APAP+CAFFEINE [Concomitant]
  12. ACETAMINOPHEN W/ PROPOXYPHENE HCL [Concomitant]
  13. PROZAC [Concomitant]
  14. RANITIDINE [Concomitant]

REACTIONS (1)
  - DEPENDENCE [None]
